FAERS Safety Report 10219062 (Version 1)
Quarter: 2014Q2

REPORT INFORMATION
  Report Type: Spontaneous
  Country: US (occurrence: None)
  Receive Date: 20140604
  Receipt Date: 20140604
  Transmission Date: 20141212
  Serious: No
  Sender: FDA-Public Use
  Company Number: None

PATIENT
  Age: 48 Year
  Sex: Female

DRUGS (1)
  1. EQUATE OIL FREE MAKEUP REMOVER [Suspect]
     Indication: THERAPEUTIC SKIN CARE TOPICAL
     Dates: start: 20140501, end: 20140603

REACTIONS (2)
  - Product contamination [None]
  - Product quality issue [None]
